FAERS Safety Report 4504454-1 (Version None)
Quarter: 2004Q4

REPORT INFORMATION
  Report Type: 
  Country: None (occurrence: None)
  Receive Date: 20041116
  Receipt Date: 20041109
  Transmission Date: 20050328
  Serious: Yes (Other)
  Sender: FDA-Public Use
  Company Number: 200415367BCC

PATIENT
  Age: 72 Year
  Sex: Male
  Weight: 113.3993 kg

DRUGS (7)
  1. ASPIRIN [Suspect]
     Dosage: QD, ORAL
     Route: 048
     Dates: start: 19920101
  2. ALKA-SELTZER [Suspect]
     Indication: DYSPEPSIA
     Dosage: ORAL
     Route: 048
  3. MAALOX MS TOTAL [Suspect]
     Indication: DYSPEPSIA
     Dosage: SEE IMAGE
     Route: 048
     Dates: start: 20041022
  4. MAALOX MS TOTAL [Suspect]
     Indication: DYSPEPSIA
     Dosage: SEE IMAGE
     Route: 048
     Dates: start: 20041023
  5. TUMS [Concomitant]
  6. TENORMIN [Concomitant]
  7. PRILOSEC [Concomitant]

REACTIONS (7)
  - DEAFNESS [None]
  - DYSPEPSIA [None]
  - EAR CONGESTION [None]
  - EAR PAIN [None]
  - FAECES DISCOLOURED [None]
  - INNER EAR DISORDER [None]
  - TINNITUS [None]
